FAERS Safety Report 8605866-7 (Version None)
Quarter: 2012Q3

REPORT INFORMATION
  Report Type: 
  Country: None (occurrence: None)
  Receive Date: 20120820
  Receipt Date: 20120810
  Transmission Date: 20120928
  Serious: Yes (Hospitalization, Congenital Anomaly)
  Sender: FDA-Public Use
  Company Number: US-GLAXOSMITHKLINE-A0990070A

PATIENT
  Sex: Male

DRUGS (2)
  1. ORTHO TRI-CYCLEN [Concomitant]
     Indication: CONTRACEPTION
     Route: 064
     Dates: end: 19980601
  2. PAXIL [Suspect]
     Indication: PRODUCT USED FOR UNKNOWN INDICATION
     Route: 064

REACTIONS (3)
  - URETHRAL MEATUS STENOSIS [None]
  - CONGENITAL GENITOURINARY ABNORMALITY [None]
  - FOETAL EXPOSURE DURING PREGNANCY [None]
